FAERS Safety Report 16818981 (Version 2)
Quarter: 2019Q4

REPORT INFORMATION
  Report Type: Report from Study
  Country: US (occurrence: US)
  Receive Date: 20190917
  Receipt Date: 20191018
  Transmission Date: 20200122
  Serious: Yes (Life-Threatening, Other)
  Sender: FDA-Public Use
  Company Number: US-ASTRAZENECA-2019SF31712

PATIENT
  Age: 826 Month
  Sex: Female
  Weight: 107.1 kg

DRUGS (5)
  1. METFORMIN [Suspect]
     Active Substance: METFORMIN HYDROCHLORIDE
     Route: 065
  2. INSULIN [Suspect]
     Active Substance: INSULIN NOS
     Route: 065
  3. RADIOTHERAPY [Suspect]
     Active Substance: RADIATION THERAPY
     Indication: HEAD AND NECK CANCER
     Dosage: 70 GY (2 GY/FX)
     Route: 065
     Dates: start: 20190722
  4. DURVALUMAB. [Suspect]
     Active Substance: DURVALUMAB
     Indication: HEAD AND NECK CANCER
     Route: 042
     Dates: start: 20190708, end: 20190729
  5. RADIOTHERAPY [Suspect]
     Active Substance: RADIATION THERAPY
     Indication: HEAD AND NECK CANCER
     Dosage: 70 GY (2 GY/FX)
     Route: 065
     Dates: end: 20190812

REACTIONS (2)
  - Hypoglycaemia [Recovered/Resolved]
  - Lymphocyte count decreased [Recovered/Resolved]

NARRATIVE: CASE EVENT DATE: 20190812
